FAERS Safety Report 15877432 (Version 2)
Quarter: 2019Q1

REPORT INFORMATION
  Report Type: Report from Study
  Country: US (occurrence: US)
  Receive Date: 20190128
  Receipt Date: 20190206
  Transmission Date: 20190417
  Serious: Yes (Other)
  Sender: FDA-Public Use
  Company Number: US-SA-2019SA016487

PATIENT
  Age: 64 Year
  Sex: Female

DRUGS (17)
  1. SYMBICORT [Concomitant]
     Active Substance: BUDESONIDE\FORMOTEROL FUMARATE DIHYDRATE
  2. SPIRIVA [Concomitant]
     Active Substance: TIOTROPIUM BROMIDE MONOHYDRATE
  3. DUPILUMAB [Suspect]
     Active Substance: DUPILUMAB
     Indication: DERMATITIS ATOPIC
     Dosage: UNK
     Dates: start: 20181202
  4. TACROLIMUS. [Concomitant]
     Active Substance: TACROLIMUS
  5. PROAIR HFA [Concomitant]
     Active Substance: ALBUTEROL SULFATE
  6. DUPILUMAB [Suspect]
     Active Substance: DUPILUMAB
     Indication: ECZEMA
  7. VITAMIN D [Concomitant]
     Active Substance: CHOLECALCIFEROL
  8. TRIAMCINOLONE ACETONIDE (GLUCOCORTICOID) [Concomitant]
  9. CALCIUM + D3 [CALCIUM;COLECALCIFEROL] [Concomitant]
  10. DEXAMETHASONE. [Concomitant]
     Active Substance: DEXAMETHASONE
  11. FLONASE [Concomitant]
     Active Substance: FLUTICASONE PROPIONATE
  12. SINGULAIR [Concomitant]
     Active Substance: MONTELUKAST SODIUM
  13. AMBIEN [Concomitant]
     Active Substance: ZOLPIDEM TARTRATE
  14. ALLEGRA D-12 HOUR [Concomitant]
     Active Substance: FEXOFENADINE HYDROCHLORIDE\PSEUDOEPHEDRINE HYDROCHLORIDE
     Dosage: UNK
  15. ZADITOR [KETOTIFEN] [Concomitant]
     Route: 050
  16. ELIDEL [Concomitant]
     Active Substance: PIMECROLIMUS
  17. EUCRISA [Concomitant]
     Active Substance: CRISABOROLE

REACTIONS (2)
  - Vitreous floaters [Not Recovered/Not Resolved]
  - Retinal tear [Not Recovered/Not Resolved]
